FAERS Safety Report 17766515 (Version 1)
Quarter: 2020Q2

REPORT INFORMATION
  Report Type: Spontaneous
  Country: US (occurrence: US)
  Receive Date: 20200508
  Receipt Date: 20200508
  Transmission Date: 20200714
  Serious: No
  Sender: FDA-Public Use
  Company Number: None

PATIENT
  Weight: 69 kg

DRUGS (5)
  1. CARBOPLATIN (241240) [Suspect]
     Active Substance: CARBOPLATIN
     Indication: PRODUCT USED FOR UNKNOWN INDICATION
     Dates: end: 20200327
  2. ETOPOSIDE (VP-16) [Suspect]
     Active Substance: ETOPOSIDE
     Dates: end: 20200327
  3. TAXOL [Suspect]
     Active Substance: PACLITAXEL
     Dates: end: 20200306
  4. G-CSF (FILGRASTIM, AMGEN) [Suspect]
     Active Substance: FILGRASTIM
     Dates: end: 20200409
  5. IFOSFAMIDE. [Suspect]
     Active Substance: IFOSFAMIDE
     Dates: end: 20200309

REACTIONS (2)
  - Engraftment syndrome [None]
  - Graft versus host disease [None]

NARRATIVE: CASE EVENT DATE: 20200413
